FAERS Safety Report 14635300 (Version 2)
Quarter: 2018Q2

REPORT INFORMATION
  Report Type: Spontaneous
  Country: US (occurrence: US)
  Receive Date: 20180314
  Receipt Date: 20180413
  Transmission Date: 20180711
  Serious: No
  Sender: FDA-Public Use
  Company Number: US-TEVA-2018-US-863026

PATIENT
  Age: 65 Year
  Sex: Female

DRUGS (1)
  1. VENLAFAXINE [Suspect]
     Active Substance: VENLAFAXINE HYDROCHLORIDE
     Dates: start: 201507

REACTIONS (1)
  - Dysphagia [Recovered/Resolved with Sequelae]

NARRATIVE: CASE EVENT DATE: 201507
